FAERS Safety Report 16783160 (Version 1)
Quarter: 2019Q3

REPORT INFORMATION
  Report Type: Report from Study
  Country: None (occurrence: CO)
  Receive Date: 20190907
  Receipt Date: 20190907
  Transmission Date: 20191005
  Serious: Yes (Other)
  Sender: FDA-Public Use
  Company Number: CO-ABBVIE-19K-036-2915228-00

PATIENT
  Age: 61 Year
  Sex: Female
  Weight: 66 kg

DRUGS (2)
  1. HUMIRA [Suspect]
     Active Substance: ADALIMUMAB
     Indication: RHEUMATOID ARTHRITIS
     Route: 058
     Dates: end: 20190708
  2. HUMIRA [Suspect]
     Active Substance: ADALIMUMAB
     Indication: RHEUMATOID ARTHRITIS
     Route: 058
     Dates: start: 20110224

REACTIONS (8)
  - Exostosis [Unknown]
  - Intervertebral disc degeneration [Recovering/Resolving]
  - Intervertebral disc protrusion [Recovering/Resolving]
  - Osteochondrosis [Recovering/Resolving]
  - Gait disturbance [Recovered/Resolved]
  - Spinal pain [Recovered/Resolved]
  - Intervertebral disc protrusion [Recovering/Resolving]
  - Spinal column injury [Recovering/Resolving]

NARRATIVE: CASE EVENT DATE: 201712
